FAERS Safety Report 24684944 (Version 1)
Quarter: 2024Q4

REPORT INFORMATION
  Report Type: Other
  Country: FR (occurrence: FR)
  Receive Date: 20241202
  Receipt Date: 20241202
  Transmission Date: 20250114
  Serious: Yes (Hospitalization)
  Sender: ZYDUS PHARM
  Company Number: None

PATIENT

DRUGS (1)
  1. DULOXETINE [Suspect]
     Active Substance: DULOXETINE
     Indication: Depression
     Dosage: 360 MILLIGRAM, QD
     Route: 048
     Dates: start: 20240923, end: 20240929

REACTIONS (8)
  - Electrocardiogram QT prolonged [Recovering/Resolving]
  - Mydriasis [Recovered/Resolved]
  - Tachycardia [Recovering/Resolving]
  - Hepatic cytolysis [Recovering/Resolving]
  - Myoclonus [Recovered/Resolved]
  - Vertigo [Recovered/Resolved]
  - Nausea [Recovered/Resolved]
  - Drug abuse [Recovering/Resolving]

NARRATIVE: CASE EVENT DATE: 20240923
